FAERS Safety Report 10304929 (Version 1)
Quarter: 2014Q3

REPORT INFORMATION
  Report Type: Spontaneous
  Country: SE (occurrence: None)
  Receive Date: 20140710
  Receipt Date: 20140710
  Transmission Date: 20150326
  Serious: Yes (Hospitalization)
  Sender: FDA-Public Use
  Company Number: 2014043281

PATIENT
  Age: 46 Year
  Sex: Female

DRUGS (4)
  1. FLUOXETINE (FLUOXETINE) [Suspect]
     Active Substance: FLUOXETINE HYDROCHLORIDE
  2. XARELTO [Suspect]
     Active Substance: RIVAROXABAN
     Indication: PULMONARY EMBOLISM
     Dates: start: 20140110, end: 20140203
  3. OCTOSTIM [Suspect]
     Active Substance: DESMOPRESSIN ACETATE
     Indication: POLYMENORRHAGIA
     Dosage: 150 UG, 1 SPRAY IN EACH NOSTRIL AT DAY 1 AND 2 OF MENSTRUATION RESPIRATORY (INHALATION)
     Route: 045
  4. CYKLOKARON (TRANEXAMIC ACID) [Concomitant]

REACTIONS (5)
  - Hyponatraemia [None]
  - Off label use [None]
  - Dizziness [None]
  - Vaginal haemorrhage [None]
  - Vomiting [None]
